FAERS Safety Report 4411277-0 (Version None)
Quarter: 2004Q2

REPORT INFORMATION
  Report Type: 
  Country: None (occurrence: None)
  Receive Date: 20040630
  Receipt Date: 20040506
  Transmission Date: 20050107
  Serious: No
  Sender: FDA-Public Use
  Company Number: 04P-163-0259286-00

PATIENT
  Sex: Female

DRUGS (1)
  1. HUMIRA [Suspect]
     Dates: start: 20040201, end: 20040401

REACTIONS (3)
  - PRURITUS [None]
  - RASH PRURITIC [None]
  - VASCULITIS NECROTISING [None]
